FAERS Safety Report 6560047-6 (Version None)
Quarter: 2010Q1

REPORT INFORMATION
  Report Type: 
  Country: None (occurrence: None)
  Receive Date: 20100129
  Receipt Date: 20090915
  Transmission Date: 20100710
  Serious: No
  Sender: FDA-Public Use
  Company Number: US-ABBOTT-09P-163-0598225-00

PATIENT
  Sex: Male
  Weight: 76.272 kg

DRUGS (7)
  1. HUMIRA [Suspect]
     Indication: CROHN'S DISEASE
     Dosage: WILL CONTINUE WITH EOW DOSING
     Route: 058
     Dates: start: 20090831, end: 20090831
  2. FLAGYL [Suspect]
     Indication: CROHN'S DISEASE
     Dates: start: 20090101, end: 20090914
  3. PENTASA [Concomitant]
     Indication: CROHN'S DISEASE
  4. PROTONIX [Concomitant]
     Indication: GASTROOESOPHAGEAL REFLUX DISEASE
  5. FOLIC ACID [Concomitant]
     Indication: CROHN'S DISEASE
  6. MERCAPTOPURINE [Concomitant]
     Indication: CROHN'S DISEASE
  7. FLORA-Q [Concomitant]
     Indication: CROHN'S DISEASE

REACTIONS (2)
  - HYPOAESTHESIA [None]
  - PARAESTHESIA [None]
